FAERS Safety Report 25134116 (Version 2)
Quarter: 2025Q2

REPORT INFORMATION
  Report Type: Spontaneous
  Country: JP (occurrence: JP)
  Receive Date: 20250328
  Receipt Date: 20250418
  Transmission Date: 20250717
  Serious: No
  Sender: AMGEN
  Company Number: JP-KYOWAKIRIN-2025KK005256

PATIENT
  Age: 9 Decade
  Sex: Female

DRUGS (1)
  1. DARBEPOETIN ALFA [Suspect]
     Active Substance: DARBEPOETIN ALFA
     Indication: Myelodysplastic syndrome
     Dosage: 240 UG, 1X/WEEK
     Route: 065

REACTIONS (1)
  - No adverse event [Unknown]
